FAERS Safety Report 4650220-6 (Version None)
Quarter: 2005Q2

REPORT INFORMATION
  Report Type: 
  Country: None (occurrence: None)
  Receive Date: 20050428
  Receipt Date: 20050415
  Transmission Date: 20051028
  Serious: Yes (Hospitalization, Other)
  Sender: FDA-Public Use
  Company Number: KII-2005-0016153

PATIENT
  Age: 48 Year
  Sex: Female

DRUGS (6)
  1. OXYCONTIN [Suspect]
     Indication: PAIN
     Dosage: ORAL
     Route: 048
  2. ALCOHOL (ETHANOL) [Suspect]
  3. BENZODIAZEPINE  DERIVATIVES [Suspect]
  4. HYDROCODONE BITARTRATE + ACETAMINOPHEN [Suspect]
  5. ASPIRIN [Suspect]
  6. VISTARIL [Suspect]

REACTIONS (14)
  - AGITATION [None]
  - ALANINE AMINOTRANSFERASE INCREASED [None]
  - ANXIETY [None]
  - ASPARTATE AMINOTRANSFERASE INCREASED [None]
  - ATRIAL FIBRILLATION [None]
  - COMA [None]
  - CONFUSIONAL STATE [None]
  - DRUG WITHDRAWAL SYNDROME [None]
  - HEART RATE INCREASED [None]
  - MYDRIASIS [None]
  - OVERDOSE [None]
  - PNEUMONIA [None]
  - SOMNOLENCE [None]
  - SPEECH DISORDER [None]
